FAERS Safety Report 20781292 (Version 1)
Quarter: 2022Q2

REPORT INFORMATION
  Report Type: Report from Study
  Country: KR (occurrence: KR)
  Receive Date: 20220504
  Receipt Date: 20220504
  Transmission Date: 20220721
  Serious: Yes (Other)
  Sender: FDA-Public Use
  Company Number: KR-CELLTRION INC.-2022KR004853

PATIENT

DRUGS (2)
  1. INFLIXIMAB [Suspect]
     Active Substance: INFLIXIMAB
     Indication: Ankylosing spondylitis
     Dosage: UNK (LAST ADMINISTRATION DATE BEFORE REPORTING: 01DEC2021)
  2. INFLIXIMAB [Suspect]
     Active Substance: INFLIXIMAB
     Dosage: DOSE: 5MG/KG, INTERVAL: 9WEEKS

REACTIONS (2)
  - Hyperplastic cholecystopathy [Not Recovered/Not Resolved]
  - Off label use [Unknown]
